FAERS Safety Report 7026969-7 (Version None)
Quarter: 2010Q3

REPORT INFORMATION
  Report Type: 
  Country: None (occurrence: None)
  Receive Date: 20100929
  Receipt Date: 20100914
  Transmission Date: 20110219
  Serious: Yes (Hospitalization)
  Sender: FDA-Public Use
  Company Number: DSA_44003_2010

PATIENT
  Age: 76 Year
  Sex: Female

DRUGS (11)
  1. DILTIAZEM HYDROCHLORIDE [Suspect]
     Indication: PRODUCT USED FOR UNKNOWN INDICATION
     Dosage: (DF)
     Dates: start: 20100515, end: 20100702
  2. ESOMEPRAZOLE [Concomitant]
  3. LASILIEX /00032601/ [Concomitant]
  4. NEBIVOLOL [Concomitant]
  5. IMOVANE [Concomitant]
  6. VASTEN /00880402/ [Concomitant]
  7. URSOLVAN [Concomitant]
  8. CORTANCYL [Concomitant]
  9. ADVAGRAF [Concomitant]
  10. LEVOTHYROXINE SODIUM [Concomitant]
  11. PREVISCAN /00789001/ [Concomitant]

REACTIONS (1)
  - ACUTE GENERALISED EXANTHEMATOUS PUSTULOSIS [None]
